FAERS Safety Report 4346290-5 (Version None)
Quarter: 2004Q2

REPORT INFORMATION
  Report Type: 
  Country: None (occurrence: None)
  Receive Date: 20040423
  Receipt Date: 20040423
  Transmission Date: 20050107
  Serious: No
  Sender: FDA-Public Use
  Company Number: None

PATIENT
  Age: 53 Year
  Sex: Male
  Weight: 93 kg

DRUGS (8)
  1. LIPITOR [Suspect]
     Indication: HYPERCHOLESTEROLAEMIA
     Dosage: 10 MG QD
  2. SYNTHROID [Concomitant]
  3. ASPIRIN [Concomitant]
  4. PREVACID [Concomitant]
  5. LOPRESSOR [Concomitant]
  6. NORVASC [Concomitant]
  7. MONOPRIL [Concomitant]
  8. NPH INSULIN [Concomitant]

REACTIONS (2)
  - MYOSITIS [None]
  - PNEUMONIA [None]
